FAERS Safety Report 8462073 (Version 4)
Quarter: 2013Q2

REPORT INFORMATION
  Report Type: Report from Study
  Country: KR (occurrence: KR)
  Receive Date: 20120315
  Receipt Date: 20130610
  Transmission Date: 20140414
  Serious: Yes (Hospitalization, Other)
  Sender: FDA-Public Use
  Company Number: PHHY2012KR021556

PATIENT
  Age: 63 Year
  Sex: Male
  Weight: 74 kg

DRUGS (2)
  1. EXJADE [Suspect]
     Indication: IRON OVERLOAD
     Dosage: 20 MG/KG, UNK
     Route: 048
     Dates: start: 20080723, end: 20090311
  2. BLOOD TRANSFUSION, AUXILIARY PRODUCTS [Concomitant]
     Dosage: U, EVERY TWO WEEKS

REACTIONS (6)
  - Condition aggravated [Unknown]
  - Haemolysis [Unknown]
  - Haemoglobin decreased [Unknown]
  - Blood iron abnormal [Unknown]
  - Liver function test abnormal [Unknown]
  - Feeling abnormal [Unknown]
